FAERS Safety Report 6114902-1 (Version None)
Quarter: 2009Q1

REPORT INFORMATION
  Report Type: 
  Country: None (occurrence: None)
  Receive Date: 20090311
  Receipt Date: 20080829
  Transmission Date: 20090719
  Serious: Yes (Other)
  Sender: FDA-Public Use
  Company Number: US200806004577

PATIENT
  Age: 57 Year
  Sex: Female
  Weight: 51.7 kg

DRUGS (4)
  1. GEMZAR [Suspect]
     Indication: LUNG NEOPLASM MALIGNANT
     Dosage: 1500 MG/M2, INTRAVENOUS
     Route: 042
     Dates: start: 20080502, end: 20080708
  2. RITALIN [Concomitant]
  3. ZOLOFT [Concomitant]
  4. ALBUTEROL [Concomitant]

REACTIONS (2)
  - GENERALISED OEDEMA [None]
  - PAIN [None]
